APPROVED DRUG PRODUCT: DIAZEPAM
Active Ingredient: DIAZEPAM
Strength: 5MG/ML **Federal Register determination that product was not discontinued or withdrawn for safety or effectiveness reasons**
Dosage Form/Route: INJECTABLE;INJECTION
Application: N020124 | Product #001
Applicant: US ARMY MEDICAL RESEARCH MATERIEL COMMAND
Approved: Dec 5, 1990 | RLD: No | RS: No | Type: DISCN